FAERS Safety Report 10305900 (Version 1)
Quarter: 2014Q3

REPORT INFORMATION
  Report Type: Spontaneous
  Country: US (occurrence: None)
  Receive Date: 20140711
  Receipt Date: 20140711
  Transmission Date: 20150326
  Serious: Yes (Hospitalization)
  Sender: FDA-Public Use
  Company Number: 201407043

PATIENT
  Age: 64 Year
  Sex: Male

DRUGS (11)
  1. XIAFLEX [Suspect]
     Active Substance: COLLAGENASE CLOSTRIDIUM HISTOLYTICUM
     Indication: PEYRONIE^S DISEASE
     Dosage: INTRALESIONAL
     Dates: end: 20140509
  2. NIFEDIPINE. [Concomitant]
     Active Substance: NIFEDIPINE
  3. CETIRIZINE [Concomitant]
     Active Substance: CETIRIZINE HYDROCHLORIDE
  4. HCTZ (HYDROCHLOROTHIAZIDE) [Concomitant]
     Active Substance: HYDROCHLOROTHIAZIDE
  5. FISH OIL [Concomitant]
     Active Substance: FISH OIL
  6. TAMSULOSIN [Concomitant]
     Active Substance: TAMSULOSIN
  7. OMEPRAZOLE. [Concomitant]
     Active Substance: OMEPRAZOLE
  8. ATORVASTATIN [Concomitant]
     Active Substance: ATORVASTATIN
  9. MESALAMINE (MESALAZINE) [Concomitant]
  10. BABY ASA (ACETYLSALICYLIC ACID) [Concomitant]
  11. MELATONIN [Concomitant]
     Active Substance: MELATONIN

REACTIONS (1)
  - Fracture of penis [None]

NARRATIVE: CASE EVENT DATE: 20140509
